FAERS Safety Report 10206822 (Version 1)
Quarter: 2014Q2

REPORT INFORMATION
  Report Type: Spontaneous
  Country: DE (occurrence: DE)
  Receive Date: 20140530
  Receipt Date: 20140530
  Transmission Date: 20141212
  Serious: Yes (Life-Threatening, Hospitalization, Other)
  Sender: FDA-Public Use
  Company Number: DE-PFIZER INC-2014146920

PATIENT
  Age: 54 Year
  Sex: Female

DRUGS (17)
  1. LYRICA [Suspect]
     Dosage: 150 MG, 1X/DAY
     Route: 048
     Dates: start: 20120114, end: 20120129
  2. FLUANXOL [Suspect]
     Dosage: 10 MG, 1X/DAY
     Route: 048
     Dates: start: 201103, end: 201104
  3. FLUANXOL [Suspect]
     Dosage: 20 MG, 1X/DAY
     Route: 048
     Dates: start: 201104, end: 201201
  4. FLUANXOL [Suspect]
     Dosage: 25 MG, 1X/DAY
     Route: 048
     Dates: start: 201201, end: 20120129
  5. SOLIAN [Suspect]
     Dosage: 800 MG, UNK
     Route: 048
     Dates: start: 2010, end: 201101
  6. SOLIAN [Suspect]
     Dosage: 1200 MG, UNK
     Route: 048
     Dates: start: 201101, end: 20120129
  7. REMERGIL [Suspect]
     Dosage: 30 MG, 1X/DAY
     Route: 048
     Dates: start: 200301, end: 201001
  8. REMERGIL [Suspect]
     Dosage: 45 MG, 1X/DAY
     Route: 048
     Dates: start: 201001, end: 20120116
  9. REMERGIL [Suspect]
     Dosage: 60 MG, 1X/DAY
     Route: 048
     Dates: start: 20120117, end: 20120129
  10. ATOSIL [Suspect]
     Dosage: 150 MG, 1X/DAY
     Route: 048
     Dates: start: 20120116, end: 20120129
  11. TAVOR [Concomitant]
     Dosage: 3 MG, 1X/DAY
     Route: 048
     Dates: start: 20111226, end: 20120118
  12. TAVOR [Concomitant]
     Dosage: 2.5 MG, 1X/DAY
     Route: 048
     Dates: start: 20120119, end: 20120120
  13. TAVOR [Concomitant]
     Dosage: 2 MG, 1X/DAY
     Route: 048
     Dates: start: 20120121, end: 20120125
  14. TAVOR [Concomitant]
     Dosage: 1.5 MG, 1X/DAY
     Route: 048
     Dates: start: 20120126, end: 20120126
  15. TAVOR [Concomitant]
     Dosage: 1 MG, 1X/DAY
     Route: 048
     Dates: start: 20120127, end: 20120129
  16. BISOPROLOL [Concomitant]
     Dosage: 5 MG, 1X/DAY
     Route: 048
  17. L-THYROXIN [Concomitant]
     Dosage: 25 UG, 1X/DAY
     Route: 048

REACTIONS (3)
  - Pneumonia [Recovered/Resolved]
  - Respiratory failure [Recovered/Resolved]
  - Pneumonia aspiration [Recovered/Resolved]
